FAERS Safety Report 9171545 (Version 1)
Quarter: 2013Q1

REPORT INFORMATION
  Report Type: Spontaneous
  Country: US (occurrence: US)
  Receive Date: 20130319
  Receipt Date: 20130319
  Transmission Date: 20140127
  Serious: Yes (Death)
  Sender: FDA-Public Use
  Company Number: US-ASTRAZENECA-2013SE17469

PATIENT
  Sex: Male

DRUGS (1)
  1. SYNAGIS [Suspect]
     Dosage: 15 MG/KG IM/ MONTHLY
     Route: 030
     Dates: start: 201301

REACTIONS (1)
  - Death [Fatal]
